FAERS Safety Report 7232846-9 (Version None)
Quarter: 2011Q1

REPORT INFORMATION
  Report Type: 
  Country: None (occurrence: None)
  Receive Date: 20110106
  Receipt Date: 20101223
  Transmission Date: 20110831
  Serious: Yes (Hospitalization)
  Sender: FDA-Public Use
  Company Number: JP-1184476

PATIENT
  Age: 84 Year
  Sex: Female

DRUGS (2)
  1. TRAVATAN Z [Suspect]
     Indication: OPEN ANGLE GLAUCOMA
     Dosage: 1 GTT QD QD OPHTHALMIC
     Route: 047
     Dates: start: 20090119, end: 20101013
  2. TEARBALANCE (HYALURONATE SODIUM) [Concomitant]

REACTIONS (1)
  - CATARACT [None]
